FAERS Safety Report 17740858 (Version 2)
Quarter: 2020Q2

REPORT INFORMATION
  Report Type: Report from Study
  Country: JP (occurrence: JP)
  Receive Date: 20200504
  Receipt Date: 20200507
  Transmission Date: 20200714
  Serious: Yes (Death)
  Sender: FDA-Public Use
  Company Number: JP-PFIZER INC-2020175960

PATIENT
  Age: 61 Year
  Sex: Male

DRUGS (4)
  1. ITRACONAZOLE. [Suspect]
     Active Substance: ITRACONAZOLE
     Indication: NEUTROPENIA
  2. VORICONAZOLE. [Suspect]
     Active Substance: VORICONAZOLE
     Indication: CANDIDA INFECTION
     Dosage: 360 MG
  3. ITRACONAZOLE. [Suspect]
     Active Substance: ITRACONAZOLE
     Indication: CANDIDA INFECTION
     Dosage: 200 MG
  4. VORICONAZOLE. [Suspect]
     Active Substance: VORICONAZOLE
     Indication: NEUTROPENIA

REACTIONS (2)
  - Drug resistance [Fatal]
  - Systemic candida [Fatal]
